FAERS Safety Report 9022341 (Version 1)
Quarter: 2013Q1

REPORT INFORMATION
  Report Type: Spontaneous
  Country: CA (occurrence: CA)
  Receive Date: 20130118
  Receipt Date: 20130118
  Transmission Date: 20140127
  Serious: Yes (Other)
  Sender: FDA-Public Use
  Company Number: PHHY2013CA004574

PATIENT
  Age: 74 None
  Sex: Female

DRUGS (3)
  1. ACLASTA [Suspect]
     Indication: OSTEOPOROSIS
     Dosage: UNK
     Route: 042
     Dates: start: 20091109
  2. ACLASTA [Suspect]
     Dosage: UNK
     Route: 042
     Dates: start: 20101111
  3. ACLASTA [Suspect]
     Dosage: UNK
     Route: 042
     Dates: start: 20111122

REACTIONS (1)
  - Spinal fracture [Unknown]
